FAERS Safety Report 9335623 (Version 2)
Quarter: 2013Q3

REPORT INFORMATION
  Report Type: Spontaneous
  Country: IT (occurrence: IT)
  Receive Date: 20130605
  Receipt Date: 20130731
  Transmission Date: 20140515
  Serious: Yes (Life-Threatening)
  Sender: FDA-Public Use
  Company Number: PHHY2013IT056679

PATIENT
  Sex: Male

DRUGS (2)
  1. AMOXICILLIN [Suspect]
     Indication: TOOTH EXTRACTION
     Dosage: 1 G, ONCE/SINGLE
     Route: 048
     Dates: start: 20130410, end: 20130410
  2. MEPIVACAINE [Suspect]
     Indication: TOOTH EXTRACTION
     Dosage: 1 DF, ONCE/SINGLE
     Route: 058
     Dates: start: 20130410, end: 20130410

REACTIONS (3)
  - Hypotension [Recovering/Resolving]
  - Malaise [Recovering/Resolving]
  - Erythema [Recovering/Resolving]
